FAERS Safety Report 12484443 (Version 1)
Quarter: 2016Q2

REPORT INFORMATION
  Report Type: Spontaneous
  Country: US (occurrence: None)
  Receive Date: 20160620
  Receipt Date: 20160620
  Transmission Date: 20160815
  Serious: Yes (Hospitalization, Other)
  Sender: FDA-Public Use
  Company Number: None

PATIENT
  Age: 40 Year
  Sex: Male
  Weight: 104.33 kg

DRUGS (7)
  1. KEPPRA XR [Concomitant]
     Active Substance: LEVETIRACETAM
  2. FELBEMATE [Concomitant]
  3. ONFI [Concomitant]
     Active Substance: CLOBAZAM
  4. ABILIFY [Suspect]
     Active Substance: ARIPIPRAZOLE
     Indication: DEPRESSION
     Dosage: C180 TABLET(S) TWISE S DAY
     Route: 048
  5. BABY ASPIRIN [Concomitant]
     Active Substance: ASPIRIN
  6. LATUDA [Concomitant]
     Active Substance: LURASIDONE HYDROCHLORIDE
  7. LIPITOR [Concomitant]
     Active Substance: ATORVASTATIN CALCIUM

REACTIONS (3)
  - Compulsive sexual behaviour [None]
  - Compulsive shopping [None]
  - Gambling disorder [None]

NARRATIVE: CASE EVENT DATE: 20130108
